FAERS Safety Report 20003307 (Version 1)
Quarter: 2021Q4

REPORT INFORMATION
  Report Type: Spontaneous
  Country: US (occurrence: US)
  Receive Date: 20211027
  Receipt Date: 20211027
  Transmission Date: 20220303
  Serious: Yes (Other)
  Sender: FDA-Public Use
  Company Number: US-AMGEN-USASP2021162387

PATIENT
  Age: 79 Year
  Sex: Female

DRUGS (1)
  1. REPATHA [Suspect]
     Active Substance: EVOLOCUMAB
     Indication: Blood cholesterol increased
     Dosage: UNK
     Route: 065

REACTIONS (12)
  - Presyncope [Recovering/Resolving]
  - Exophthalmos [Recovering/Resolving]
  - Peripheral swelling [Unknown]
  - Vertigo [Recovering/Resolving]
  - Somnolence [Recovering/Resolving]
  - Muscle twitching [Recovering/Resolving]
  - Wheezing [Recovering/Resolving]
  - Speech disorder [Recovering/Resolving]
  - Headache [Recovering/Resolving]
  - Nausea [Recovering/Resolving]
  - Injection site pain [Recovering/Resolving]
  - Dizziness [Unknown]

NARRATIVE: CASE EVENT DATE: 20211009
